FAERS Safety Report 8533412-5 (Version None)
Quarter: 2012Q3

REPORT INFORMATION
  Report Type: 
  Country: None (occurrence: None)
  Receive Date: 20120724
  Receipt Date: 20120719
  Transmission Date: 20120928
  Serious: Yes (Other)
  Sender: FDA-Public Use
  Company Number: PHHY2012CA002873

PATIENT
  Sex: Male
  Weight: 63.492 kg

DRUGS (1)
  1. SANDOSTATIN LAR [Suspect]
     Indication: METASTATIC CARCINOID TUMOUR
     Dosage: 30 MG, EVERY 4 WEEKS
     Route: 030
     Dates: start: 20070706, end: 20120112

REACTIONS (4)
  - WEIGHT DECREASED [None]
  - CHOLELITHIASIS [None]
  - MALAISE [None]
  - DIARRHOEA [None]
